FAERS Safety Report 10913636 (Version 1)
Quarter: 2015Q1

REPORT INFORMATION
  Report Type: Spontaneous
  Country: US (occurrence: None)
  Receive Date: 20150310
  Receipt Date: 20150310
  Transmission Date: 20150721
  Serious: No
  Sender: FDA-Public Use
  Company Number: None

PATIENT
  Age: 68 Year
  Sex: Male
  Weight: 90.5 kg

DRUGS (1)
  1. RIVAROXABAN [Suspect]
     Active Substance: RIVAROXABAN
     Dosage: 20 MG, EVERY DAY, PO
     Route: 048
     Dates: start: 20141021, end: 20141106

REACTIONS (3)
  - Agitation [None]
  - Crying [None]
  - Abnormal behaviour [None]

NARRATIVE: CASE EVENT DATE: 20141106
